FAERS Safety Report 14302966 (Version 1)
Quarter: 2017Q4

REPORT INFORMATION
  Report Type: Spontaneous
  Country: AU (occurrence: AU)
  Receive Date: 20171219
  Receipt Date: 20171219
  Transmission Date: 20180321
  Serious: Yes (Life-Threatening, Other)
  Sender: FDA-Public Use
  Company Number: AU-JUBILANT CADISTA PHARMACEUTICALS-2017JUB00430

PATIENT
  Age: 15 Year
  Sex: Male
  Weight: 70 kg

DRUGS (12)
  1. METHYLENE BLUE. [Suspect]
     Active Substance: METHYLENE BLUE
     Dosage: 1.5 MG/KG, ONCE
     Route: 065
  2. QUETIAPINE. [Suspect]
     Active Substance: QUETIAPINE
     Dosage: 1.5 G SLOW RELEASE
     Route: 048
  3. VENLAFAXINE [Suspect]
     Active Substance: VENLAFAXINE HYDROCHLORIDE
     Dosage: 1050 MG, ONCE
     Route: 048
  4. FLUOXETINE [Suspect]
     Active Substance: FLUOXETINE HYDROCHLORIDE
     Dosage: 560 MG, ONCE
     Route: 048
  5. RAMIPRIL. [Suspect]
     Active Substance: RAMIPRIL
     Dosage: 100 MG, ONCE
     Route: 048
  6. LITHIUM. [Suspect]
     Active Substance: LITHIUM
     Dosage: UNK, ONCE
     Route: 048
  7. METHYLENE BLUE. [Suspect]
     Active Substance: METHYLENE BLUE
     Dosage: 1.5 MG/KG/HR X 12 HOURS
     Route: 042
  8. QUETIAPINE. [Suspect]
     Active Substance: QUETIAPINE
     Dosage: 12 G IMMEDIATE RELEASE
     Route: 048
  9. DESVENLAFAXINE. [Suspect]
     Active Substance: DESVENLAFAXINE
     Dosage: 5.6 G, ONCE
     Route: 048
  10. AMLODIPINE [Suspect]
     Active Substance: AMLODIPINE BESYLATE
     Dosage: 290 MG, ONCE
     Route: 048
  11. PROMETHAZINE [Suspect]
     Active Substance: PROMETHAZINE\PROMETHAZINE HYDROCHLORIDE
     Dosage: 500 MG, ONCE
     Route: 048
  12. METHYLENE BLUE. [Suspect]
     Active Substance: METHYLENE BLUE
     Dosage: 1 MG/KG/HR X 12 HOURS
     Route: 042

REACTIONS (4)
  - Overdose [Recovered/Resolved]
  - Hypovolaemic shock [Recovered/Resolved]
  - Serotonin syndrome [Recovered/Resolved]
  - Pneumonia [Recovered/Resolved]
